FAERS Safety Report 18265123 (Version 1)
Quarter: 2020Q3

REPORT INFORMATION
  Report Type: Spontaneous
  Country: US (occurrence: US)
  Receive Date: 20200914
  Receipt Date: 20200914
  Transmission Date: 20201103
  Serious: No
  Sender: FDA-Public Use
  Company Number: US-BIOMARINAP-US-2020-132021

PATIENT
  Sex: Female
  Weight: 114.97 kg

DRUGS (1)
  1. KUVAN [Suspect]
     Active Substance: SAPROPTERIN DIHYDROCHLORIDE
     Indication: PHENYLKETONURIA
     Dosage: 2300 MILLIGRAM, QD
     Route: 048

REACTIONS (2)
  - Gastrooesophageal reflux disease [Unknown]
  - Abdominal pain upper [Unknown]
